FAERS Safety Report 5134876-X (Version None)
Quarter: 2006Q4

REPORT INFORMATION
  Report Type: 
  Country: None (occurrence: None)
  Receive Date: 20061025
  Receipt Date: 20061011
  Transmission Date: 20070319
  Serious: Yes (Other)
  Sender: FDA-Public Use
  Company Number: PHBS2006JP16019

PATIENT
  Age: 57 Year
  Sex: Male

DRUGS (6)
  1. TIGASON [Concomitant]
     Indication: PSORIASIS
     Route: 048
  2. METHOTREXATE SODIUM [Concomitant]
     Indication: PSORIASIS
     Route: 048
  3. STEROIDS NOS [Concomitant]
     Indication: PSORIASIS
     Route: 061
  4. VITAMIN D3 [Concomitant]
     Indication: PSORIASIS
     Route: 061
  5. ANALGESICS [Concomitant]
  6. NEORAL [Suspect]
     Indication: PSORIASIS
     Dosage: 150 MG/D
     Route: 048
     Dates: start: 20040101

REACTIONS (3)
  - PEMPHIGOID [None]
  - PSORIASIS [None]
  - RENAL IMPAIRMENT [None]
